FAERS Safety Report 16507937 (Version 1)
Quarter: 2019Q3

REPORT INFORMATION
  Report Type: Spontaneous
  Country: DE (occurrence: DE)
  Receive Date: 20190701
  Receipt Date: 20190701
  Transmission Date: 20191004
  Serious: Yes (Other)
  Sender: FDA-Public Use
  Company Number: DE-MYLANLABS-2019M1059294

PATIENT
  Age: 6 Day
  Sex: Male
  Weight: 2.35 kg

DRUGS (4)
  1. PRAVIDEL (BROMOCRIPTINE MESYLATE) [Suspect]
     Active Substance: BROMOCRIPTINE MESYLATE
     Indication: PRODUCT USED FOR UNKNOWN INDICATION
     Dosage: UNK
  2. LANITOP [Concomitant]
     Active Substance: METILDIGOXIN
     Indication: SUPRAVENTRICULAR TACHYCARDIA
     Dosage: UNK
     Route: 065
  3. GENTAMICIN. [Concomitant]
     Active Substance: GENTAMICIN
     Dosage: UNK
     Route: 065
  4. CLAFORAN [Concomitant]
     Active Substance: CEFOTAXIME SODIUM
     Route: 065

REACTIONS (2)
  - Condition aggravated [Recovered/Resolved]
  - Supraventricular tachycardia [Recovered/Resolved]

NARRATIVE: CASE EVENT DATE: 20020814
